FAERS Safety Report 17428971 (Version 2)
Quarter: 2020Q4

REPORT INFORMATION
  Report Type: Spontaneous
  Country: JP (occurrence: JP)
  Receive Date: 20200217
  Receipt Date: 20201013
  Transmission Date: 20210113
  Serious: Yes (Death, Disabling, Other)
  Sender: FDA-Public Use
  Company Number: JP-009507513-2002JPN002932

PATIENT
  Age: 80 Year
  Sex: Male
  Weight: 89 kg

DRUGS (1)
  1. SIVEXTRO [Suspect]
     Active Substance: TEDIZOLID PHOSPHATE
     Indication: SKIN INFECTION
     Dosage: 200 MILLIGRAM, QD
     Route: 048
     Dates: start: 20190129, end: 20191224

REACTIONS (2)
  - Visual acuity reduced [Not Recovered/Not Resolved]
  - Hepatocellular carcinoma [Fatal]

NARRATIVE: CASE EVENT DATE: 20200128
